FAERS Safety Report 5829527-2 (Version None)
Quarter: 2008Q3

REPORT INFORMATION
  Report Type: 
  Country: None (occurrence: None)
  Receive Date: 20080731
  Receipt Date: 20080720
  Transmission Date: 20090109
  Serious: Yes (Other)
  Sender: FDA-Public Use
  Company Number: US-PFIZER INC-2008061369

PATIENT
  Sex: Female
  Weight: 65.909 kg

DRUGS (2)
  1. CHANTIX [Suspect]
     Indication: SMOKING CESSATION THERAPY
     Dosage: FREQ:DAILY
  2. CYMBALTA [Concomitant]

REACTIONS (8)
  - ACNE [None]
  - APHTHOUS STOMATITIS [None]
  - DIARRHOEA [None]
  - HAEMATOCHEZIA [None]
  - INFLUENZA [None]
  - INTENTIONAL DRUG MISUSE [None]
  - MUSCLE SPASMS [None]
  - NAUSEA [None]
